FAERS Safety Report 10491692 (Version 1)
Quarter: 2014Q4

REPORT INFORMATION
  Report Type: Spontaneous
  Country: US (occurrence: US)
  Receive Date: 20141002
  Receipt Date: 20141002
  Transmission Date: 20150528
  Serious: No
  Sender: FDA-Public Use
  Company Number: US-GLAXOSMITHKLINE-A1057859A

PATIENT
  Age: 85 Year
  Sex: Female

DRUGS (2)
  1. ADVAIR HFA [Suspect]
     Active Substance: FLUTICASONE PROPIONATE\SALMETEROL XINAFOATE
     Route: 055
  2. PROAIR HFA [Concomitant]
     Active Substance: ALBUTEROL SULFATE

REACTIONS (8)
  - Neuropathy peripheral [Unknown]
  - Feeling abnormal [Unknown]
  - Muscle spasms [Unknown]
  - Costochondritis [Unknown]
  - Pain in extremity [Unknown]
  - Bronchitis [Unknown]
  - Painful respiration [Unknown]
  - Pain [Unknown]

NARRATIVE: CASE EVENT DATE: 20140121
